FAERS Safety Report 4346498-9 (Version None)
Quarter: 2004Q2

REPORT INFORMATION
  Report Type: 
  Country: None (occurrence: None)
  Receive Date: 20040426
  Receipt Date: 20030919
  Transmission Date: 20050107
  Serious: Yes (Other)
  Sender: FDA-Public Use
  Company Number: US-BRISTOL-MYERS SQUIBB COMPANY-12387981

PATIENT
  Age: 66 Year
  Sex: Female
  Weight: 79 kg

DRUGS (11)
  1. CARBOPLATIN [Suspect]
     Indication: OVARIAN CANCER
     Dosage: 1ST DOSE-07JU03 ADD'L LOT# 3E75214,(31DEC05), 3A61788+3G72927(31OCT05), 3B73720,(31MAR06)
     Route: 042
     Dates: start: 20030819, end: 20030819
  2. TAXOL [Concomitant]
     Indication: OVARIAN CANCER
     Dosage: 1ST DOSE ON 07JUL03
     Route: 042
     Dates: start: 20030819, end: 20030819
  3. BENADRYL [Concomitant]
     Indication: PREMEDICATION
     Route: 042
     Dates: start: 20030819, end: 20030819
  4. ZANTAC [Concomitant]
     Indication: PREMEDICATION
     Route: 042
     Dates: start: 20030819, end: 20030819
  5. DECADRON [Concomitant]
     Indication: PREMEDICATION
     Route: 042
     Dates: start: 20030819, end: 20030819
  6. KYTRIL [Concomitant]
     Indication: PREMEDICATION
     Route: 042
     Dates: start: 20030819, end: 20030819
  7. ATIVAN [Concomitant]
  8. EPOGEN [Concomitant]
  9. LORTAB [Concomitant]
  10. NEUPOGEN [Concomitant]
  11. HEPARIN [Concomitant]
     Dosage: 100 UNITS AT THE END OF EA. TREATMENT

REACTIONS (1)
  - HYPERSENSITIVITY [None]
